FAERS Safety Report 24423020 (Version 1)
Quarter: 2024Q4

REPORT INFORMATION
  Report Type: Spontaneous
  Country: FR (occurrence: FR)
  Receive Date: 20241010
  Receipt Date: 20241010
  Transmission Date: 20250114
  Serious: Yes (Other)
  Sender: RANBAXY
  Company Number: FR-SUN PHARMACEUTICAL INDUSTRIES LTD-2024R1-472660

PATIENT
  Age: 29 Year
  Sex: Male

DRUGS (1)
  1. DOXYCYCLINE [Suspect]
     Active Substance: DOXYCYCLINE
     Indication: Sexual transmission of infection
     Dosage: UNK
     Route: 065

REACTIONS (2)
  - Disease recurrence [Recovered/Resolved]
  - Fixed eruption [Recovering/Resolving]
